FAERS Safety Report 9624805 (Version 1)
Quarter: 2013Q4

REPORT INFORMATION
  Report Type: Spontaneous
  Country: TR (occurrence: TR)
  Receive Date: 20131015
  Receipt Date: 20131015
  Transmission Date: 20140711
  Serious: Yes (Death, Hospitalization)
  Sender: FDA-Public Use
  Company Number: TR-MYLANLABS-2013S1022687

PATIENT
  Age: 39 Year
  Sex: Female

DRUGS (8)
  1. LITHIUM [Suspect]
     Indication: BIPOLAR DISORDER
     Dosage: 600 MG/DAY; THEN INCREASED TO 900 MG/DAY
     Route: 065
  2. LITHIUM [Suspect]
     Indication: BIPOLAR DISORDER
     Dosage: 900 MG/DAY
     Route: 065
  3. OLANZAPINE [Suspect]
     Indication: BIPOLAR DISORDER
     Dosage: 20 MG/DAY
     Route: 065
  4. DIAZEPAM [Suspect]
     Indication: GRAND MAL CONVULSION
     Route: 050
  5. LEVETIRACETAM [Suspect]
     Indication: MYOCLONIC EPILEPSY
     Dosage: 1 G/DAY; THEN INCREASED TO 3 G/DAY
     Route: 065
  6. LEVETIRACETAM [Suspect]
     Indication: MYOCLONIC EPILEPSY
     Dosage: 3 G/DAY
     Route: 065
  7. VORICONAZOLE [Concomitant]
     Indication: CENTRAL NERVOUS SYSTEM ABSCESS
     Dosage: 400 MG/DAY
     Route: 065
  8. METRONIDAZOLE [Concomitant]
     Indication: CENTRAL NERVOUS SYSTEM ABSCESS
     Dosage: 1500 MG/DAY
     Route: 065

REACTIONS (7)
  - Toxicity to various agents [Fatal]
  - Neurotoxicity [Fatal]
  - Cardiac arrest [Fatal]
  - Hypotension [Fatal]
  - Bradycardia [Fatal]
  - Atrioventricular block [Fatal]
  - Hepatic enzyme increased [Not Recovered/Not Resolved]
